FAERS Safety Report 15365396 (Version 3)
Quarter: 2019Q1

REPORT INFORMATION
  Report Type: Spontaneous
  Country: US (occurrence: US)
  Receive Date: 20180910
  Receipt Date: 20190225
  Transmission Date: 20190417
  Serious: No
  Sender: FDA-Public Use
  Company Number: US-PFIZER INC-2018360202

PATIENT
  Age: 71 Year
  Sex: Male

DRUGS (1)
  1. ADVIL LIQUI-GELS [Suspect]
     Active Substance: IBUPROFEN
     Indication: PAIN IN EXTREMITY
     Dosage: 200 MG, 2X/DAY (ONE 200 MG LIQUIGEL AT BREAKFAST AND ONE 200 MG LIQUIGEL WITH HIS EVENING MEAL)
     Route: 048
     Dates: start: 201808, end: 2018

REACTIONS (2)
  - Drug ineffective [Unknown]
  - Gastric disorder [Recovered/Resolved]

NARRATIVE: CASE EVENT DATE: 2018
